FAERS Safety Report 13662422 (Version 1)
Quarter: 2017Q2

REPORT INFORMATION
  Report Type: Report from Study
  Country: US (occurrence: US)
  Receive Date: 20170617
  Receipt Date: 20170617
  Transmission Date: 20170830
  Serious: Yes (Death, Hospitalization)
  Sender: FDA-Public Use
  Company Number: US-TORRENT-00002990

PATIENT
  Age: 64 Year
  Sex: Female

DRUGS (5)
  1. LITHIUM. [Suspect]
     Active Substance: LITHIUM
  2. LEVOTHYROXINE. [Suspect]
     Active Substance: LEVOTHYROXINE
  3. BUPROPION. [Suspect]
     Active Substance: BUPROPION
  4. ZOLPIDEM [Suspect]
     Active Substance: ZOLPIDEM\ZOLPIDEM TARTRATE
  5. IMIPRAMINE [Suspect]
     Active Substance: IMIPRAMINE

REACTIONS (3)
  - Intentional overdose [None]
  - Toxicity to various agents [Fatal]
  - Completed suicide [Fatal]
